FAERS Safety Report 6640128-9 (Version None)
Quarter: 2010Q1

REPORT INFORMATION
  Report Type: 
  Country: None (occurrence: None)
  Receive Date: 20100318
  Receipt Date: 20100312
  Transmission Date: 20100710
  Serious: Yes (Other)
  Sender: FDA-Public Use
  Company Number: DE-ROCHE-685765

PATIENT
  Age: 65 Year
  Sex: Male
  Weight: 71 kg

DRUGS (1)
  1. BONIVA [Suspect]
     Indication: OSTEOPENIA
     Dosage: ROUTE: INTRAVENOUS (NOS); FORM: SHORT INFUSION; DOSE: 3MG 1 DAY
     Route: 042

REACTIONS (1)
  - ATRIAL FIBRILLATION [None]
